FAERS Safety Report 6695176-X (Version None)
Quarter: 2010Q2

REPORT INFORMATION
  Report Type: 
  Country: None (occurrence: None)
  Receive Date: 20100423
  Receipt Date: 20100412
  Transmission Date: 20101027
  Serious: Yes (Hospitalization)
  Sender: FDA-Public Use
  Company Number: CN-WATSON-2010-05239

PATIENT
  Age: 40 Year
  Sex: Female

DRUGS (2)
  1. AMLODIPINE BESYLATE [Suspect]
     Indication: HYPERTENSION
     Dosage: 2.5 MG, Q 12 HR
     Route: 048
  2. MAGNESIUM SULFATE [Suspect]
     Indication: PRE-ECLAMPSIA
     Dosage: 10 G/DAY OVER 10 HRS,  AFTER 2 G LOADING DOSE
     Route: 042

REACTIONS (3)
  - DRUG INTERACTION [None]
  - NEUROMUSCULAR BLOCKADE [None]
  - PARESIS [None]
